FAERS Safety Report 12921641 (Version 2)
Quarter: 2016Q4

REPORT INFORMATION
  Report Type: Spontaneous
  Country: CA (occurrence: CA)
  Receive Date: 20161108
  Receipt Date: 20161219
  Transmission Date: 20170207
  Serious: Yes (Disabling, Other)
  Sender: FDA-Public Use
  Company Number: CA-ASTELLAS-2016US043415

PATIENT
  Age: 38 Year
  Sex: Male

DRUGS (4)
  1. TACROLIMUS. [Suspect]
     Active Substance: TACROLIMUS
     Indication: LUNG TRANSPLANT
     Dosage: UNK UNK, UNKNOWN FREQ.
     Route: 065
  2. MYCOPHENOLATE MOFETIL. [Suspect]
     Active Substance: MYCOPHENOLATE MOFETIL
     Indication: LUNG TRANSPLANT
     Dosage: UNK, UNKNOWN FREQ.
     Route: 065
  3. PREDNISONE. [Suspect]
     Active Substance: PREDNISONE
     Indication: LUNG TRANSPLANT
     Dosage: UNK UNK, UNKNOWN FREQ.
     Route: 065
  4. PREDNISONE. [Suspect]
     Active Substance: PREDNISONE
     Dosage: UNK UNK, UNKNOWN FREQ.
     Route: 048

REACTIONS (11)
  - Haemothorax [Not Recovered/Not Resolved]
  - Cerebral reperfusion injury [Not Recovered/Not Resolved]
  - VIth nerve paralysis [Not Recovered/Not Resolved]
  - Hemianopia homonymous [Not Recovered/Not Resolved]
  - Endophthalmitis [Unknown]
  - Cerebral infarction [Not Recovered/Not Resolved]
  - Iridocyclitis [Unknown]
  - Pseudomonas infection [Unknown]
  - Sensory loss [Not Recovered/Not Resolved]
  - Hemiparesis [Not Recovered/Not Resolved]
  - Off label use [Unknown]
